FAERS Safety Report 23396882 (Version 1)
Quarter: 2024Q1

REPORT INFORMATION
  Report Type: Spontaneous
  Country: US (occurrence: None)
  Receive Date: 20240111
  Receipt Date: 20240111
  Transmission Date: 20240410
  Serious: Yes (Death)
  Sender: FDA-Public Use
  Company Number: None

PATIENT
  Age: 82 Year
  Sex: Female
  Weight: 76.8 kg

DRUGS (3)
  1. ORITAVANCIN [Suspect]
     Active Substance: ORITAVANCIN
     Indication: Endocarditis
     Dosage: OTHER FREQUENCY : ONCE X 2 DOSES;?
     Route: 042
     Dates: start: 20231210, end: 20231221
  2. ORITAVANCIN [Suspect]
     Active Substance: ORITAVANCIN
     Indication: Vascular device infection
  3. ORITAVANCIN [Suspect]
     Active Substance: ORITAVANCIN
     Indication: Enterococcal infection

REACTIONS (7)
  - Chills [None]
  - Back pain [None]
  - Dyspnoea [None]
  - Hypoxia [None]
  - Diarrhoea [None]
  - Laryngeal oedema [None]
  - Infusion related reaction [None]

NARRATIVE: CASE EVENT DATE: 20231221
